FAERS Safety Report 21382385 (Version 2)
Quarter: 2023Q1

REPORT INFORMATION
  Report Type: Other
  Country: DE (occurrence: None)
  Receive Date: 20220927
  Receipt Date: 20230111
  Transmission Date: 20230418
  Serious: Yes (Hospitalization)
  Sender: FDA-Public Use
  Company Number: DE-ROCHE-3107649

PATIENT
  Age: 28 Year
  Sex: Female
  Weight: 53.3 kg

DRUGS (4)
  1. OCRELIZUMAB [Suspect]
     Active Substance: OCRELIZUMAB
     Indication: Relapsing-remitting multiple sclerosis
     Dosage: START DATE IF LAST DOSE PRIOR TO THE LMP : /NOV/2021?STOP DATE IF LAST DOSE PRIOR TO THE LMP : /NOV/
     Route: 042
     Dates: end: 202111
  2. ACETAMINOPHEN [Concomitant]
     Active Substance: ACETAMINOPHEN
     Indication: Headache
     Dates: start: 202111, end: 202111
  3. ACETAMINOPHEN [Concomitant]
     Active Substance: ACETAMINOPHEN
     Dates: start: 202202, end: 202204
  4. CAFFEINE [Concomitant]
     Active Substance: CAFFEINE

REACTIONS (2)
  - Maternal exposure before pregnancy [Unknown]
  - Premature labour [Recovered/Resolved]

NARRATIVE: CASE EVENT DATE: 20220817
